FAERS Safety Report 20858087 (Version 1)
Quarter: 2022Q2

REPORT INFORMATION
  Report Type: Spontaneous
  Country: US (occurrence: US)
  Receive Date: 20220521
  Receipt Date: 20220521
  Transmission Date: 20220721
  Serious: No
  Sender: FDA-Public Use
  Company Number: US-BRISTOL-MYERS SQUIBB COMPANY-2022-040469

PATIENT
  Age: 73 Year
  Sex: Female
  Weight: 53.9 kg

DRUGS (1)
  1. REVLIMID [Suspect]
     Active Substance: LENALIDOMIDE
     Indication: Plasma cell myeloma
     Dosage: FREQUENCY:MWF, 21D ON, 7D OFF
     Route: 048
     Dates: start: 20220302

REACTIONS (1)
  - Renal disorder [Unknown]
